FAERS Safety Report 7788985-7 (Version None)
Quarter: 2011Q3

REPORT INFORMATION
  Report Type: 
  Country: None (occurrence: None)
  Receive Date: 20110930
  Receipt Date: 20110928
  Transmission Date: 20111222
  Serious: Yes (Death, Hospitalization)
  Sender: FDA-Public Use
  Company Number: PHHY2011DO86207

PATIENT
  Age: 72 Year
  Sex: Female

DRUGS (2)
  1. FORADIL [Suspect]
     Indication: PNEUMONIA
     Dosage: 12 UG, BID
     Dates: start: 20090101
  2. BUDESONIDE [Suspect]
     Indication: PNEUMONIA
     Dosage: 400 UG, BID
     Dates: start: 20090101

REACTIONS (1)
  - LUNG NEOPLASM MALIGNANT [None]
